FAERS Safety Report 12619930 (Version 1)
Quarter: 2016Q3

REPORT INFORMATION
  Report Type: Spontaneous
  Country: US (occurrence: US)
  Receive Date: 20160803
  Receipt Date: 20160803
  Transmission Date: 20161109
  Serious: No
  Sender: FDA-Public Use
  Company Number: US-ENDO PHARMACEUTICALS INC.-2015-002326

PATIENT
  Age: 27 Year
  Sex: Male
  Weight: 97.61 kg

DRUGS (3)
  1. TESTOPEL [Suspect]
     Active Substance: TESTOSTERONE
     Indication: HYPOGONADISM
     Dosage: 10 PELLETS
     Route: 058
     Dates: start: 2014
  2. MULTIVITAMIN [Concomitant]
     Active Substance: VITAMINS
     Indication: PRODUCT USED FOR UNKNOWN INDICATION
  3. TESTOPEL [Suspect]
     Active Substance: TESTOSTERONE
     Indication: BLOOD TESTOSTERONE DECREASED
     Dosage: 10 PELLETS
     Route: 058
     Dates: start: 20150609

REACTIONS (4)
  - Device expulsion [Recovered/Resolved]
  - Implant site mass [Unknown]
  - Prescribed overdose [Not Recovered/Not Resolved]
  - Implant site dehiscence [Recovered/Resolved]

NARRATIVE: CASE EVENT DATE: 2014
